FAERS Safety Report 9774992 (Version 1)
Quarter: 2013Q4

REPORT INFORMATION
  Report Type: Spontaneous
  Country: US (occurrence: US)
  Receive Date: 20131220
  Receipt Date: 20131220
  Transmission Date: 20140711
  Serious: No
  Sender: FDA-Public Use
  Company Number: US-GLAXOSMITHKLINE-A1032666A

PATIENT
  Age: 66 Year
  Sex: Male

DRUGS (7)
  1. AVODART [Suspect]
     Indication: PROSTATOMEGALY
     Dosage: 1CAP PER DAY
     Route: 048
     Dates: start: 2011, end: 2012
  2. JALYN [Suspect]
     Indication: PROSTATOMEGALY
     Dosage: 1CAP PER DAY
     Route: 048
  3. FLOMAX [Suspect]
     Dosage: 1CAPL PER DAY
     Route: 048
     Dates: start: 2011, end: 2012
  4. L-THYROXINE [Concomitant]
  5. PRADAXA [Concomitant]
  6. ATENOLOL [Concomitant]
  7. VITAMIN B-12 [Concomitant]

REACTIONS (2)
  - Rhinorrhoea [Not Recovered/Not Resolved]
  - Ill-defined disorder [Not Recovered/Not Resolved]
